FAERS Safety Report 4478371-X (Version None)
Quarter: 2004Q4

REPORT INFORMATION
  Report Type: 
  Country: None (occurrence: None)
  Receive Date: 20041018
  Receipt Date: 20041018
  Transmission Date: 20050328
  Serious: Yes (Hospitalization)
  Sender: FDA-Public Use
  Company Number: None

PATIENT
  Age: 47 Year
  Sex: Male
  Weight: 160 kg

DRUGS (2)
  1. LISINOPRIL [Suspect]
     Indication: HYPERTENSION
     Dosage: 10 MG  QD  ORAL
     Route: 048
     Dates: start: 20040708, end: 20040807
  2. LISINOPRIL [Suspect]
     Dosage: 20 MG  QD  ORAL
     Route: 048
     Dates: start: 20040915, end: 20040921

REACTIONS (4)
  - ANGIONEUROTIC OEDEMA [None]
  - BRONCHOSPASM [None]
  - DRUG HYPERSENSITIVITY [None]
  - RESPIRATORY DISTRESS [None]
